FAERS Safety Report 5938956-8 (Version None)
Quarter: 2008Q4

REPORT INFORMATION
  Report Type: 
  Country: None (occurrence: None)
  Receive Date: 20081103
  Receipt Date: 20081030
  Transmission Date: 20090506
  Serious: Yes (Life-Threatening)
  Sender: FDA-Public Use
  Company Number: JP-ASTRAZENECA-2008AP05310

PATIENT
  Age: 79 Year
  Sex: Male
  Weight: 49 kg

DRUGS (4)
  1. ZOLADEX [Suspect]
     Indication: PROSTATE CANCER
     Route: 058
     Dates: start: 20040116, end: 20040921
  2. ZOLADEX [Suspect]
     Route: 058
     Dates: start: 20041022, end: 20071026
  3. CASODEX [Suspect]
     Indication: PROSTATE CANCER
     Route: 048
     Dates: start: 20061117, end: 20070511
  4. ODYNE [Suspect]
     Indication: PROSTATE CANCER
     Route: 048
     Dates: start: 20040110, end: 20061116

REACTIONS (3)
  - ANAEMIA [None]
  - MYELODYSPLASTIC SYNDROME [None]
  - THROMBOCYTOPENIA [None]
